FAERS Safety Report 14501818 (Version 1)
Quarter: 2018Q1

REPORT INFORMATION
  Report Type: Spontaneous
  Country: JP (occurrence: JP)
  Receive Date: 20180207
  Receipt Date: 20180207
  Transmission Date: 20180509
  Serious: Yes (Hospitalization)
  Sender: FDA-Public Use
  Company Number: JP-AMGEN-JPNSP2018017035

PATIENT
  Age: 68 Year
  Sex: Female

DRUGS (3)
  1. PRALIA [Suspect]
     Active Substance: DENOSUMAB
     Indication: OSTEOPOROSIS
     Dosage: 60 MG, Q6MO
     Route: 058
     Dates: start: 20170718, end: 20170718
  2. LIPITOR [Concomitant]
     Active Substance: ATORVASTATIN CALCIUM
     Dosage: UNK
     Route: 048
  3. DIART [Concomitant]
     Active Substance: AZOSEMIDE
     Dosage: UNK
     Route: 048

REACTIONS (1)
  - Pleuropericarditis [Recovered/Resolved]

NARRATIVE: CASE EVENT DATE: 20171023
